FAERS Safety Report 9392443 (Version 1)
Quarter: 2013Q3

REPORT INFORMATION
  Report Type: Spontaneous
  Country: US (occurrence: None)
  Receive Date: 20130708
  Receipt Date: 20130708
  Transmission Date: 20140515
  Serious: Yes (Other)
  Sender: FDA-Public Use
  Company Number: None

PATIENT
  Age: 16 Year
  Sex: Male

DRUGS (2)
  1. EXJADE 250MG NOVARTIS [Suspect]
     Indication: IRON OVERLOAD
     Dosage: 1 TABLET
     Route: 048
     Dates: start: 200903, end: 201306
  2. EXJADE [Suspect]
     Dosage: 2 TABLET
     Route: 048

REACTIONS (1)
  - Renal disorder [None]
